FAERS Safety Report 9866761 (Version 5)
Quarter: 2014Q2

REPORT INFORMATION
  Report Type: Spontaneous
  Country: US (occurrence: US)
  Receive Date: 20140204
  Receipt Date: 20140423
  Transmission Date: 20141212
  Serious: Yes (Other)
  Sender: FDA-Public Use
  Company Number: US-009507513-1401USA008048

PATIENT
  Age: 52 Year
  Sex: Male

DRUGS (21)
  1. PEGINTRON [Suspect]
     Indication: HEPATITIS C
     Dosage: REDIPEN; 0.5 ML Q7DAYS
     Route: 058
     Dates: start: 20131231, end: 20140331
  2. REBETOL [Suspect]
     Indication: HEPATITIS C
     Dosage: 800 MG, BID (TWICE A DAY)
     Route: 048
     Dates: start: 20131231, end: 20140331
  3. SOVALDI [Concomitant]
     Dosage: 400 MG, QD
     Route: 048
  4. METFORMIN [Concomitant]
     Dosage: I TWICE A DAY WITH FOOD, ONE BID
  5. GLUCOTROL [Concomitant]
     Dosage: 10 MG, ONE QD
  6. MECLIZINE [Concomitant]
     Dosage: 25 MG, ONE TID
  7. DEXILANT [Concomitant]
     Dosage: 4 TIMES A DAY AS NEEDED, ONE QID
  8. FLEXERIL [Concomitant]
     Dosage: 10 MG, ONE TID
  9. LISINOPRIL [Concomitant]
     Dosage: 10 MG, ONE QD
     Route: 048
  10. METOPROLOL [Concomitant]
     Dosage: 50 MG, ONE BID
  11. NORCO [Concomitant]
     Dosage: 10 MG, ONE Q8H PRN
  12. SIMVASTATIN [Concomitant]
     Dosage: 20 MG, QD, ONE A DAY
  13. PROMETHAZINE [Concomitant]
     Indication: NAUSEA
     Dosage: 25 MG, QID, AS NEEDED, PRN FOR NAUSEA
  14. ZOLPIDEM TARTRATE [Concomitant]
     Dosage: 10 MG, HS
  15. FUROSEMIDE [Concomitant]
     Dosage: 40 MG, QD
  16. TIZANIDINE HYDROCHLORIDE [Concomitant]
     Dosage: 4 MG, HS
  17. LORATADINE [Concomitant]
     Dosage: 10 MG, QD
  18. FERROUS SULFATE [Concomitant]
     Dosage: 325 MG, BID
  19. VITAMIN D (UNSPECIFIED) [Concomitant]
     Dosage: UNK
  20. OMEGA-3 MARINE TRIGLYCERIDES [Concomitant]
  21. OMEGA-3 [Concomitant]

REACTIONS (32)
  - Aphonia [Unknown]
  - Gait disturbance [Unknown]
  - Hyperhidrosis [Not Recovered/Not Resolved]
  - Pain [Unknown]
  - Influenza [Unknown]
  - Hot flush [Unknown]
  - Blood glucose increased [Unknown]
  - Dizziness [Not Recovered/Not Resolved]
  - Nausea [Unknown]
  - Product quality issue [Unknown]
  - Asthenia [Unknown]
  - Influenza like illness [Unknown]
  - Decreased appetite [Unknown]
  - Weight decreased [Unknown]
  - Injection site rash [Unknown]
  - Hyperchlorhydria [Unknown]
  - Feeling abnormal [Unknown]
  - Headache [Unknown]
  - Mobility decreased [Unknown]
  - Muscle spasms [Unknown]
  - Faeces discoloured [Unknown]
  - Dyspnoea [Unknown]
  - Abdominal pain upper [Unknown]
  - Lip dry [Unknown]
  - Poor quality sleep [Unknown]
  - Thirst [Unknown]
  - Cough [Unknown]
  - Productive cough [Unknown]
  - Pneumonia [Unknown]
  - Back pain [Unknown]
  - Rash [Unknown]
  - Dry mouth [Unknown]
